FAERS Safety Report 5054158-4 (Version None)
Quarter: 2006Q3

REPORT INFORMATION
  Report Type: 
  Country: None (occurrence: None)
  Receive Date: 20060718
  Receipt Date: 20060710
  Transmission Date: 20061208
  Serious: Yes (Other)
  Sender: FDA-Public Use
  Company Number: GB-ROCHE-455556

PATIENT
  Age: 33 Year
  Sex: Female
  Weight: 103.8 kg

DRUGS (3)
  1. XENICAL [Suspect]
     Indication: OBESITY
     Route: 048
     Dates: start: 20060703
  2. IBUPROFEN [Concomitant]
     Route: 048
  3. ACETAMINOPHEN W/ CODEINE [Concomitant]
     Route: 048

REACTIONS (1)
  - PALPITATIONS [None]
